FAERS Safety Report 16871602 (Version 1)
Quarter: 2019Q4

REPORT INFORMATION
  Report Type: Spontaneous
  Country: US (occurrence: US)
  Receive Date: 20191001
  Receipt Date: 20191001
  Transmission Date: 20200122
  Serious: Yes (Hospitalization)
  Sender: FDA-Public Use
  Company Number: US-HETERO-HET2019US01308

PATIENT
  Age: 54 Year
  Sex: Male

DRUGS (7)
  1. LITHIUM. [Suspect]
     Active Substance: LITHIUM
     Dosage: 450 MG, BID (04 MONTHS PRIOR TO ADMISSION)
     Route: 065
  2. LITHIUM. [Suspect]
     Active Substance: LITHIUM
     Dosage: 900 MG, H.S. (ON DAY 5 OF HOSPITAL ADMISSION)
     Route: 065
  3. QUETIAPINE                         /01270902/ [Suspect]
     Active Substance: QUETIAPINE FUMARATE
     Indication: PSYCHOTIC SYMPTOM
     Dosage: 300 MG, H.S.(AT BEDTIME ON DAY 1 OF HOSPITAL ADMISSION)
     Route: 065
  4. LITHIUM. [Suspect]
     Active Substance: LITHIUM
     Indication: BIPOLAR I DISORDER
     Dosage: 450 MG, BID (03 MONTHS PRIOR TO ADMISSION)
     Route: 065
  5. LITHIUM. [Suspect]
     Active Substance: LITHIUM
     Dosage: 450 MG, QD (AT THE TIME OF EMERGENCY DEPARTMENT ADMISSION)
     Route: 065
  6. QUETIAPINE                         /01270902/ [Suspect]
     Active Substance: QUETIAPINE FUMARATE
     Dosage: 400 MG, QD
     Route: 065
  7. LITHIUM. [Suspect]
     Active Substance: LITHIUM
     Dosage: 900 MG, H.S. (ON DAY1 PF HOSPITAL ADMISSION)
     Route: 065

REACTIONS (1)
  - Hypercalcaemia [Recovering/Resolving]
